FAERS Safety Report 14313412 (Version 3)
Quarter: 2018Q1

REPORT INFORMATION
  Report Type: Spontaneous
  Country: RU (occurrence: RU)
  Receive Date: 20171221
  Receipt Date: 20180130
  Transmission Date: 20180509
  Serious: Yes (Other)
  Sender: FDA-Public Use
  Company Number: RU-BAYER-2017-238457

PATIENT
  Age: 32 Year
  Sex: Female

DRUGS (2)
  1. YARINA PLUS [Suspect]
     Active Substance: DROSPIRENONE\ETHINYL ESTRADIOL\LEVOMEFOLATE CALCIUM
     Indication: CONTRACEPTION
     Dosage: UNK
     Route: 048
     Dates: start: 20170517
  2. YARINA PLUS [Suspect]
     Active Substance: DROSPIRENONE\ETHINYL ESTRADIOL\LEVOMEFOLATE CALCIUM
     Indication: CONTRACEPTION
     Dosage: UNK
     Route: 048
     Dates: start: 20171130, end: 20171205

REACTIONS (8)
  - Dysmenorrhoea [None]
  - Adenomyosis [None]
  - Metrorrhagia [None]
  - Drug ineffective [None]
  - Salpingo-oophoritis [None]
  - Uterine inflammation [None]
  - Varicose veins pelvic [None]
  - Menstrual disorder [None]
